FAERS Safety Report 4910112-1 (Version None)
Quarter: 2006Q1

REPORT INFORMATION
  Report Type: 
  Country: None (occurrence: None)
  Receive Date: 20060113
  Receipt Date: 20050427
  Transmission Date: 20060701
  Serious: Yes (Other)
  Sender: FDA-Public Use
  Company Number: HQWYE460102MAY05

PATIENT
  Age: 65 Year
  Sex: Female
  Weight: 63.56 kg

DRUGS (1)
  1. PREMPRO [Suspect]
     Indication: MENOPAUSAL SYMPTOMS
     Dosage: 0.625MG/2.5 MG DAILY
     Dates: start: 19800101

REACTIONS (1)
  - BREAST CANCER [None]
